FAERS Safety Report 8462485 (Version 4)
Quarter: 2014Q2

REPORT INFORMATION
  Report Type: Spontaneous
  Country: US (occurrence: US)
  Receive Date: 20120316
  Receipt Date: 20140501
  Transmission Date: 20141212
  Serious: Yes (Hospitalization)
  Sender: FDA-Public Use
  Company Number: US-BAYER-2012-024430

PATIENT
  Age: 31 Year
  Sex: Female
  Weight: 97.96 kg

DRUGS (10)
  1. YAZ [Suspect]
     Dosage: UNK
     Dates: start: 2006, end: 2009
  2. LOESTRIN [Concomitant]
     Dosage: UNK
  3. VICODIN [Concomitant]
     Dosage: UNK
  4. TORADOL [Concomitant]
     Dosage: UNK
  5. IBUPROFEN [Concomitant]
     Dosage: 1 DF, TID
     Route: 048
     Dates: start: 20001121, end: 20120221
  6. HYDROCODONE W/APAP [Concomitant]
     Dosage: UNK
     Route: 048
     Dates: start: 20010623, end: 20100331
  7. PROPOXYPHENE NAPSYLATE W/ACETAMINOPHENE [Concomitant]
     Dosage: 1-2 DF, QID
     Route: 048
     Dates: start: 20041016, end: 20080215
  8. MELOXICAM [Concomitant]
     Dosage: 1 DF, QD
     Route: 048
     Dates: start: 20071205, end: 20081022
  9. VALTREX [Concomitant]
     Dosage: 1 DF, QD
     Route: 048
     Dates: start: 20071205, end: 20090306
  10. KETOROLAC [Concomitant]
     Dosage: 1 DF, QID PRN
     Route: 048
     Dates: start: 20080221, end: 20081013

REACTIONS (6)
  - Cholecystectomy [None]
  - General physical health deterioration [None]
  - Anxiety [None]
  - Anhedonia [None]
  - Injury [None]
  - Cholecystitis chronic [None]
